FAERS Safety Report 8007010-6 (Version None)
Quarter: 2011Q4

REPORT INFORMATION
  Report Type: 
  Country: None (occurrence: None)
  Receive Date: 20111227
  Receipt Date: 20111222
  Transmission Date: 20120403
  Serious: No
  Sender: FDA-Public Use
  Company Number: US-JNJFOC-20111210717

PATIENT
  Sex: Male
  Weight: 122.47 kg

DRUGS (4)
  1. DURAGESIC-100 [Suspect]
     Indication: PAIN
     Route: 062
     Dates: start: 20110101, end: 20111206
  2. DURAGESIC-100 [Suspect]
     Route: 062
     Dates: start: 20111206
  3. DURAGESIC-100 [Suspect]
     Route: 062
     Dates: start: 20110101, end: 20110101
  4. OXYCODONE HCL [Concomitant]
     Indication: PAIN
     Route: 065
     Dates: start: 20110201

REACTIONS (3)
  - PRODUCT QUALITY ISSUE [None]
  - DRUG INEFFECTIVE [None]
  - WRONG TECHNIQUE IN DRUG USAGE PROCESS [None]
